FAERS Safety Report 14302391 (Version 1)
Quarter: 2017Q4

REPORT INFORMATION
  Report Type: Spontaneous
  Country: US (occurrence: US)
  Receive Date: 20171219
  Receipt Date: 20171219
  Transmission Date: 20180321
  Serious: No
  Sender: FDA-Public Use
  Company Number: US-SUPERNUS PHARMACEUTICALS, INC.-2017SUP00125

PATIENT
  Age: 68 Year
  Sex: Male
  Weight: 91.61 kg

DRUGS (9)
  1. BABY ASPIRIN [Concomitant]
     Active Substance: ASPIRIN
  2. TROKENDI XR [Suspect]
     Active Substance: TOPIRAMATE
     Indication: HEADACHE
  3. DULCOLAX NOS [Concomitant]
     Active Substance: BISACODYL OR DOCUSATE SODIUM
  4. BUSPAR [Concomitant]
     Active Substance: BUSPIRONE HYDROCHLORIDE
  5. TROKENDI XR [Suspect]
     Active Substance: TOPIRAMATE
     Indication: DIZZINESS
     Dosage: 25 MG, 1X/DAY
     Route: 048
     Dates: start: 20170516, end: 201705
  6. MAALOX ANTACID [Concomitant]
     Active Substance: ALUMINUM HYDROXIDE\DIMETHICONE\MAGNESIUM HYDROXIDE
  7. CARBIDOPA. [Concomitant]
     Active Substance: CARBIDOPA
  8. CLOPIDOGREL [Concomitant]
     Active Substance: CLOPIDOGREL BISULFATE
  9. LORATADINE. [Concomitant]
     Active Substance: LORATADINE

REACTIONS (7)
  - Off label use [Unknown]
  - Sensation of foreign body [Not Recovered/Not Resolved]
  - Drug ineffective [Unknown]
  - Dizziness [Unknown]
  - Throat irritation [Not Recovered/Not Resolved]
  - Malaise [Unknown]
  - Abdominal discomfort [Not Recovered/Not Resolved]

NARRATIVE: CASE EVENT DATE: 201705
